FAERS Safety Report 26051376 (Version 1)
Quarter: 2025Q4

REPORT INFORMATION
  Report Type: Spontaneous
  Country: SA (occurrence: SA)
  Receive Date: 20251117
  Receipt Date: 20251117
  Transmission Date: 20260118
  Serious: Yes (Life-Threatening, Hospitalization, Other)
  Sender: NOSTRUM PHARMACEUTICALS LLC
  Company Number: SA-NP-2025-387872-LIT-83

PATIENT
  Sex: Male

DRUGS (1)
  1. METFORMIN [Suspect]
     Active Substance: METFORMIN HYDROCHLORIDE
     Indication: Type 2 diabetes mellitus
     Dosage: 500 MG, BID
     Dates: start: 202502, end: 202502

REACTIONS (2)
  - Haemolytic anaemia [Recovered/Resolved]
  - Drug-genetic interaction [Recovered/Resolved]

NARRATIVE: CASE EVENT DATE: 20250201
